FAERS Safety Report 7499449-2 (Version None)
Quarter: 2011Q2

REPORT INFORMATION
  Report Type: 
  Country: None (occurrence: None)
  Receive Date: 20110524
  Receipt Date: 20110519
  Transmission Date: 20111010
  Serious: Yes (Death, Hospitalization)
  Sender: FDA-Public Use
  Company Number: PHHY2011AR43457

PATIENT
  Sex: Male

DRUGS (1)
  1. DIOVAN [Suspect]
     Indication: BLOOD PRESSURE
     Dosage: 160 MG (2 DF DAILY)
     Dates: start: 20100501, end: 20101001

REACTIONS (2)
  - MULTIPLE MYELOMA [None]
  - RESPIRATORY FAILURE [None]
